FAERS Safety Report 8339902-2 (Version None)
Quarter: 2012Q2

REPORT INFORMATION
  Report Type: 
  Country: None (occurrence: None)
  Receive Date: 20120507
  Receipt Date: 20120109
  Transmission Date: 20120825
  Serious: Yes (Other)
  Sender: FDA-Public Use
  Company Number: US-BAYER-2010-002450

PATIENT
  Age: 35 Year
  Sex: Female
  Weight: 83.9 kg

DRUGS (13)
  1. ESOMEPRAZOLE [Concomitant]
     Indication: DYSPEPSIA
     Dosage: 40 MG, UNK
     Route: 048
  2. PROMETHAZINE [Concomitant]
     Dosage: 25 MG, QD
     Route: 048
  3. PHENERGAN AND CHLORAL HYDRATE [Concomitant]
  4. ZYRTEC [Concomitant]
     Indication: MULTIPLE ALLERGIES
     Dosage: 10 MG, HS
     Route: 048
  5. ZOLOFT [Concomitant]
     Indication: ANXIETY
     Dosage: 50 MG, QD
     Route: 048
  6. MULTI-VITAMIN [Concomitant]
     Dosage: UNK UNK, QD
     Route: 048
  7. YAZ [Suspect]
     Indication: PREMENSTRUAL SYNDROME
  8. YAZ [Suspect]
     Indication: CONTRACEPTION
     Dosage: UNK
     Route: 048
     Dates: start: 20080701, end: 20090301
  9. LEVAQUIN [Concomitant]
     Dosage: 500 MG, QD
     Route: 048
  10. LORTAB [Concomitant]
     Indication: PAIN
     Dosage: UNK UNK, PRN
     Route: 048
  11. ZOCOR [Concomitant]
     Indication: BLOOD CHOLESTEROL INCREASED
     Dosage: 20 MG, HS
     Route: 048
  12. PROMEGA [Concomitant]
     Dosage: 1000 MG, QD
     Route: 048
  13. OMEPRAZOLE [Concomitant]
     Indication: UNEVALUABLE EVENT
     Dosage: 20 MG, HS
     Route: 048

REACTIONS (4)
  - BILE DUCT STONE [None]
  - GALLBLADDER DISORDER [None]
  - CHOLECYSTITIS [None]
  - CHOLELITHIASIS [None]
